FAERS Safety Report 22623874 (Version 1)
Quarter: 2023Q2

REPORT INFORMATION
  Report Type: Spontaneous
  Country: US (occurrence: None)
  Receive Date: 20230616
  Receipt Date: 20230616
  Transmission Date: 20230721
  Serious: No
  Sender: FDA-Public Use
  Company Number: None

PATIENT
  Age: 85 Year
  Sex: Female
  Weight: 79.38 kg

DRUGS (14)
  1. IBRANCE [Suspect]
     Active Substance: PALBOCICLIB
     Indication: Breast cancer female
     Dosage: OTHER FREQUENCY : 21DAYSON7OFF;?
     Route: 048
     Dates: start: 20230405
  2. ATENOLOL [Concomitant]
     Active Substance: ATENOLOL
  3. CALCIUM [Concomitant]
     Active Substance: CALCIUM
  4. DICLOFENAC [Concomitant]
     Active Substance: DICLOFENAC
  5. FENTANYL [Concomitant]
  6. FULVESTRANT [Concomitant]
     Active Substance: FULVESTRANT
  7. NORCO [Concomitant]
     Active Substance: ACETAMINOPHEN\HYDROCODONE BITARTRATE
  8. LETROZOLE [Concomitant]
     Active Substance: LETROZOLE
  9. MELOXICAM [Suspect]
     Active Substance: MELOXICAM
  10. NARCAN [Concomitant]
     Active Substance: NALOXONE HYDROCHLORIDE
  11. OXYCODONE [Concomitant]
     Active Substance: OXYCODONE
  12. TERAGRAN [Concomitant]
  13. VITAMIN D3 [Concomitant]
     Active Substance: CHOLECALCIFEROL
  14. ZOFRAN [Concomitant]
     Active Substance: ONDANSETRON HYDROCHLORIDE

REACTIONS (1)
  - Hospice care [None]
